FAERS Safety Report 4357423-9 (Version None)
Quarter: 2004Q2

REPORT INFORMATION
  Report Type: 
  Country: None (occurrence: None)
  Receive Date: 20040511
  Receipt Date: 20040511
  Transmission Date: 20050107
  Serious: Yes (Hospitalization)
  Sender: FDA-Public Use
  Company Number: None

PATIENT
  Sex: Male
  Weight: 93.8946 kg

DRUGS (13)
  1. LISINOPRIL [Suspect]
     Indication: HYPERTENSION
     Dosage: 40 MG PO QD
     Route: 048
     Dates: start: 20030827, end: 20031002
  2. ASPIRIN [Concomitant]
  3. ATENOLOL [Concomitant]
  4. DM 10/GUAIFENESN [Concomitant]
  5. HYDROCODONE/ACETAMINOPHEN [Concomitant]
  6. INDOMETHACIN [Concomitant]
  7. NOVOLIN 70/30 [Concomitant]
  8. LAMIVUDINE [Concomitant]
  9. LISINOPRIL [Concomitant]
  10. METFORMIN HCL [Concomitant]
  11. NICOTINE [Concomitant]
  12. PSEUDOEPHEDRINE HCL [Concomitant]
  13. SIMVASTATIN [Concomitant]

REACTIONS (2)
  - PHARMACEUTICAL PRODUCT COMPLAINT [None]
  - SWELLING FACE [None]
